FAERS Safety Report 5482116-4 (Version None)
Quarter: 2007Q4

REPORT INFORMATION
  Report Type: 
  Country: None (occurrence: None)
  Receive Date: 20071011
  Receipt Date: 20071005
  Transmission Date: 20080405
  Serious: No
  Sender: FDA-Public Use
  Company Number: PHEH2007US12615

PATIENT
  Age: 78 Year
  Sex: Male
  Weight: 72.108 kg

DRUGS (4)
  1. EXFORGE [Suspect]
     Dosage: 5/320 MG QD
     Dates: start: 20070828, end: 20070914
  2. COUMADIN [Concomitant]
     Indication: ATRIAL FIBRILLATION
     Dosage: UNK, QD
     Dates: start: 20050405
  3. TOPROL-XL [Concomitant]
     Indication: HYPERTENSION
     Dosage: 200 MG, QD
  4. HYDROCHLOROTHIAZIDE [Suspect]
     Indication: HYPERTENSION
     Dosage: 12.5 MG, QD
     Route: 048
     Dates: start: 20070828, end: 20070911

REACTIONS (2)
  - BLOOD CREATININE INCREASED [None]
  - GLOMERULAR FILTRATION RATE DECREASED [None]
